FAERS Safety Report 19252054 (Version 3)
Quarter: 2023Q1

REPORT INFORMATION
  Report Type: Report from Study
  Country: CA (occurrence: CA)
  Receive Date: 20210513
  Receipt Date: 20230315
  Transmission Date: 20230417
  Serious: Yes (Other)
  Sender: FDA-Public Use
  Company Number: CA-JNJFOC-20210458054

PATIENT
  Age: 37 Year
  Sex: Female
  Weight: 80 kg

DRUGS (2)
  1. REMICADE [Suspect]
     Active Substance: INFLIXIMAB
     Indication: Colitis ulcerative
     Dosage: LAST REMICADE INFUSION WAS ON 16-MAY-2022. PATIENT ALSO HAD DOSE ON 06-JUL-2022.
     Route: 042
  2. REMICADE [Suspect]
     Active Substance: INFLIXIMAB
     Dosage: IV RELOAD
     Route: 042

REACTIONS (2)
  - Mammoplasty [Unknown]
  - Off label use [Unknown]

NARRATIVE: CASE EVENT DATE: 20210506
